FAERS Safety Report 21386709 (Version 1)
Quarter: 2022Q3

REPORT INFORMATION
  Report Type: Spontaneous
  Country: FR (occurrence: FR)
  Receive Date: 20220928
  Receipt Date: 20220928
  Transmission Date: 20221027
  Serious: Yes (Hospitalization, Disabling)
  Sender: FDA-Public Use
  Company Number: FR-SHIONOGI B.V.-2022000900

PATIENT
  Sex: Male

DRUGS (4)
  1. FETROJA [Suspect]
     Active Substance: CEFIDEROCOL SULFATE TOSYLATE
     Indication: Osteomyelitis
     Dosage: 6 G/DAY IN 3 INFUSIONS OF 3 HOURS
     Route: 042
     Dates: start: 20220325, end: 20220606
  2. FETROJA [Suspect]
     Active Substance: CEFIDEROCOL SULFATE TOSYLATE
     Indication: Arthritis infective
  3. RIFAMPIN [Concomitant]
     Active Substance: RIFAMPIN
     Indication: Osteomyelitis
     Dosage: UNK
     Route: 065
  4. RIFAMPIN [Concomitant]
     Active Substance: RIFAMPIN
     Indication: Arthritis infective

REACTIONS (1)
  - Amputation [Unknown]
